FAERS Safety Report 4311751-1 (Version None)
Quarter: 2004Q1

REPORT INFORMATION
  Report Type: 
  Country: None (occurrence: None)
  Receive Date: 20040304
  Receipt Date: 20040304
  Transmission Date: 20041129
  Serious: Yes (Other)
  Sender: FDA-Public Use
  Company Number: None

PATIENT
  Age: 26 Year
  Sex: Female
  Weight: 106.5953 kg

DRUGS (1)
  1. MIRENA [Suspect]
     Dosage: LEVONORGESTEL-RELEASING INTRAUTERINE SYSTEM
     Route: 015
     Dates: start: 20020815

REACTIONS (1)
  - UNEVALUABLE EVENT [None]
